FAERS Safety Report 5796312-X (Version None)
Quarter: 2008Q2

REPORT INFORMATION
  Report Type: 
  Country: None (occurrence: None)
  Receive Date: 20080630
  Receipt Date: 20080630
  Transmission Date: 20081010
  Serious: Yes (Death)
  Sender: FDA-Public Use
  Company Number: None

PATIENT
  Sex: Male
  Weight: 104.3273 kg

DRUGS (9)
  1. DURAGESIC-100 [Suspect]
     Indication: BACK PAIN
     Dosage: 100 MCG Q72H PATCH
     Dates: start: 20070104, end: 20080318
  2. DURAGESIC-100 [Suspect]
     Indication: PROCEDURAL PAIN
     Dosage: 100 MCG Q72H PATCH
     Dates: start: 20070104, end: 20080318
  3. ALEVE [Concomitant]
  4. XANAX [Concomitant]
  5. PAROXETINE HCL [Concomitant]
  6. NEXIUM [Concomitant]
  7. BENICAR [Concomitant]
  8. XENICAL [Concomitant]
  9. VITAMIN [Concomitant]

REACTIONS (5)
  - ANALGESIC DRUG LEVEL INCREASED [None]
  - DRUG CLEARANCE DECREASED [None]
  - PULMONARY OEDEMA [None]
  - RESPIRATORY DISTRESS [None]
  - UNRESPONSIVE TO STIMULI [None]
